FAERS Safety Report 4898106-6 (Version None)
Quarter: 2006Q1

REPORT INFORMATION
  Report Type: 
  Country: None (occurrence: None)
  Receive Date: 20060127
  Receipt Date: 20060109
  Transmission Date: 20060701
  Serious: Yes (Hospitalization)
  Sender: FDA-Public Use
  Company Number: TRP_0685_2006

PATIENT
  Age: 47 Year
  Sex: Male

DRUGS (10)
  1. RIBASPHERE [Suspect]
     Indication: HEPATITIS C
     Dosage: 1200 MG QDAY, PO
     Route: 048
     Dates: start: 20050822
  2. INFERGEN [Suspect]
     Indication: HEPATITIS C
     Dosage: 15 MCG QDAY SC
     Route: 058
     Dates: start: 20050822
  3. WELLBUTRIN [Concomitant]
  4. IBUPROFEN [Concomitant]
  5. MULTIVITAMIN [Concomitant]
  6. POTASSIUM [Concomitant]
  7. AMBIEN [Concomitant]
  8. ULTRAM [Concomitant]
  9. LIDOCAINE [Concomitant]
  10. PROZAC [Concomitant]

REACTIONS (5)
  - CEREBROVASCULAR ACCIDENT [None]
  - MUSCULOSKELETAL PAIN [None]
  - ORAL LICHEN PLANUS [None]
  - SINUSITIS [None]
  - TRANSIENT ISCHAEMIC ATTACK [None]
